FAERS Safety Report 14142854 (Version 2)
Quarter: 2022Q1

REPORT INFORMATION
  Report Type: Report from Study
  Country: US (occurrence: US)
  Receive Date: 20171030
  Receipt Date: 20220303
  Transmission Date: 20220423
  Serious: Yes (Other)
  Sender: FDA-Public Use
  Company Number: US-TEVA-809191USA

PATIENT
  Age: 44 Year
  Sex: Male

DRUGS (21)
  1. AUSTEDO [Suspect]
     Active Substance: DEUTETRABENAZINE
     Indication: Huntington^s disease
     Route: 065
     Dates: start: 20170808
  2. AUSTEDO [Suspect]
     Active Substance: DEUTETRABENAZINE
     Dosage: 36 MILLIGRAM DAILY;
     Route: 065
  3. AUSTEDO [Suspect]
     Active Substance: DEUTETRABENAZINE
     Dosage: 30 MILLIGRAM DAILY; 6MG AND 9MG TWICE DAILY
     Route: 048
  4. BACLOFEN [Concomitant]
     Active Substance: BACLOFEN
  5. MOBIC [Concomitant]
     Active Substance: MELOXICAM
  6. Tab-A-Vite [Concomitant]
  7. ATIVAN [Concomitant]
     Active Substance: LORAZEPAM
  8. DEVICE [Concomitant]
     Active Substance: DEVICE
  9. MELOXICAM [Concomitant]
     Active Substance: MELOXICAM
  10. HALOPERIDOL [Concomitant]
     Active Substance: HALOPERIDOL
  11. CITALOPRAM HYDROBROMIDE [Concomitant]
     Active Substance: CITALOPRAM HYDROBROMIDE
  12. TRAZODONE HCL [Concomitant]
     Active Substance: TRAZODONE HYDROCHLORIDE
  13. VITAMIN D3 [Concomitant]
     Active Substance: CHOLECALCIFEROL
  14. ACETAMINOPHEN [Concomitant]
     Active Substance: ACETAMINOPHEN
  15. LORAZEPAM [Concomitant]
     Active Substance: LORAZEPAM
  16. POLYETHYLENE GLYCOL [Concomitant]
     Active Substance: POLYETHYLENE GLYCOL
  17. ZOFRAN [Concomitant]
     Active Substance: ONDANSETRON HYDROCHLORIDE
  18. BISACODYL [Concomitant]
     Active Substance: BISACODYL
  19. MILK OF MAGNESIA [Concomitant]
     Active Substance: MAGNESIUM HYDROXIDE
  20. MIRALAX [Concomitant]
     Active Substance: POLYETHYLENE GLYCOL 3350
  21. TUMS [Concomitant]
     Active Substance: CALCIUM CARBONATE

REACTIONS (11)
  - Unresponsive to stimuli [Recovered/Resolved]
  - Muscle spasms [Unknown]
  - Muscle spasticity [Unknown]
  - Fall [Unknown]
  - Agitation [Unknown]
  - Abnormal behaviour [Unknown]
  - Anger [Not Recovered/Not Resolved]
  - Irritability [Not Recovered/Not Resolved]
  - Lethargy [Recovered/Resolved]
  - Vomiting [Not Recovered/Not Resolved]
  - Patient uncooperative [Not Recovered/Not Resolved]

NARRATIVE: CASE EVENT DATE: 20171001
